FAERS Safety Report 17799090 (Version 1)
Quarter: 2020Q2

REPORT INFORMATION
  Report Type: Spontaneous
  Country: ES (occurrence: ES)
  Receive Date: 20200518
  Receipt Date: 20200518
  Transmission Date: 20200714
  Serious: Yes (Death, Other)
  Sender: FDA-Public Use
  Company Number: ES-TEVA-2020-ES-1235781

PATIENT
  Age: 62 Year
  Sex: Male

DRUGS (6)
  1. AZITROMICINA (7019A) [Suspect]
     Active Substance: AZITHROMYCIN
     Indication: COVID-19 PNEUMONIA
     Dosage: 500 MILLIGRAM DAILY;
     Route: 048
     Dates: start: 20200327, end: 20200401
  2. DEXAMETASONA (722A) [Suspect]
     Active Substance: DEXAMETHASONE
     Indication: COVID-19
     Dosage: 20 MG
     Route: 042
     Dates: start: 20200329, end: 20200401
  3. ENOXAPARINA (2482A) [Suspect]
     Active Substance: ENOXAPARIN
     Indication: THROMBOSIS PROPHYLAXIS
     Dosage: 80 MG
     Route: 058
     Dates: start: 20200401, end: 20200403
  4. ROACTEMRA [Suspect]
     Active Substance: TOCILIZUMAB
     Indication: COVID-19 PNEUMONIA
     Dosage: 600 MG
     Route: 042
     Dates: start: 20200327, end: 20200327
  5. HIDROXICLOROQUINA (2143A) [Suspect]
     Active Substance: HYDROXYCHLOROQUINE
     Indication: COVID-19 PNEUMONIA
     Dosage: 400 MILLIGRAM DAILY;
     Route: 048
     Dates: start: 20200327, end: 20200402
  6. CEFTRIAXONA (501A) [Suspect]
     Active Substance: CEFTRIAXONE
     Dosage: 2 GRAM DAILY;
     Route: 042
     Dates: start: 20200327, end: 20200401

REACTIONS (4)
  - Anaemia [Not Recovered/Not Resolved]
  - Hypocoagulable state [Recovered/Resolved]
  - Thrombocytopenia [Not Recovered/Not Resolved]
  - Hypofibrinogenaemia [Recovered/Resolved]

NARRATIVE: CASE EVENT DATE: 20200403
